FAERS Safety Report 6480512-X (Version None)
Quarter: 2009Q4

REPORT INFORMATION
  Report Type: 
  Country: None (occurrence: None)
  Receive Date: 20091202
  Receipt Date: 20091117
  Transmission Date: 20100525
  Serious: Yes (Hospitalization)
  Sender: FDA-Public Use
  Company Number: 2009BM000323

PATIENT
  Age: 19 Year
  Sex: Female

DRUGS (1)
  1. KUVAN [Suspect]
     Indication: PHENYLKETONURIA
     Dosage: 1000 MG; QD; PO
     Route: 048
     Dates: start: 20080101

REACTIONS (1)
  - PROTEIN TOTAL INCREASED [None]
